FAERS Safety Report 6005560-5 (Version None)
Quarter: 2008Q4

REPORT INFORMATION
  Report Type: 
  Country: None (occurrence: None)
  Receive Date: 20081216
  Receipt Date: 20081216
  Transmission Date: 20090506
  Serious: Yes (Other)
  Sender: FDA-Public Use
  Company Number: None

PATIENT
  Age: 51 Year
  Sex: Female
  Weight: 52.1637 kg

DRUGS (1)
  1. CIPROFLOXACIN HCL [Suspect]
     Indication: CYSTITIS
     Dosage: 6 TABLETS TWICE DAILY PO
     Route: 048
     Dates: start: 20081213, end: 20081214

REACTIONS (3)
  - EYE IRRITATION [None]
  - EYE PRURITUS [None]
  - SNEEZING [None]
